FAERS Safety Report 14731410 (Version 1)
Quarter: 2018Q2

REPORT INFORMATION
  Report Type: Other
  Country: IT (occurrence: IT)
  Receive Date: 20180407
  Receipt Date: 20180407
  Transmission Date: 20180711
  Serious: Yes (Life-Threatening, Other)
  Sender: FDA-Public Use
  Company Number: IT-DENTSPLY-2018SCDP000035

PATIENT
  Age: 42 Year
  Sex: Male

DRUGS (2)
  1. XYLOCAINE DENTAL (LIDOCAINE HCL INJECTION), USP 2% [Suspect]
     Active Substance: EPINEPHRINE\LIDOCAINE
     Indication: VENTRICULAR TACHYCARDIA
     Dosage: UNK
  2. AMIODARONE [Suspect]
     Active Substance: AMIODARONE
     Indication: VENTRICULAR TACHYCARDIA
     Dosage: UNK
     Dates: start: 201403

REACTIONS (1)
  - Drug ineffective [Unknown]

NARRATIVE: CASE EVENT DATE: 20140301
